FAERS Safety Report 24850044 (Version 1)
Quarter: 2025Q1

REPORT INFORMATION
  Report Type: Spontaneous
  Country: US (occurrence: US)
  Receive Date: 20250116
  Receipt Date: 20250116
  Transmission Date: 20250408
  Serious: Yes (Life-Threatening, Hospitalization)
  Sender: PERRIGO
  Company Number: US-MLMSERVICE-20241231-PI327992-00029-2

PATIENT

DRUGS (1)
  1. ACETAMINOPHEN [Suspect]
     Active Substance: ACETAMINOPHEN
     Indication: Headache
     Route: 064

REACTIONS (1)
  - Ductus arteriosus stenosis foetal [Recovering/Resolving]
